FAERS Safety Report 10333199 (Version 2)
Quarter: 2014Q3

REPORT INFORMATION
  Report Type: Spontaneous
  Country: GB (occurrence: GB)
  Receive Date: 20140722
  Receipt Date: 20140722
  Transmission Date: 20150326
  Serious: Yes (Other)
  Sender: FDA-Public Use
  Company Number: ALCN2008GB002165

PATIENT
  Sex: Female

DRUGS (4)
  1. VISCOTEARS [Suspect]
     Active Substance: CARBOMER
     Route: 047
     Dates: start: 20070830, end: 20080325
  2. POLYVINYL ALCOHOL [Concomitant]
     Active Substance: POLYVINYL ALCOHOL
     Route: 047
  3. TIMOLOL [Suspect]
     Active Substance: TIMOLOL
     Route: 047
     Dates: start: 2007
  4. LIQUIFILM TEARS [Concomitant]
     Dosage: UNK UNK, 6QD
     Route: 047
     Dates: start: 2007

REACTIONS (3)
  - Anxiety [Unknown]
  - Visual impairment [Unknown]
  - Eye movement disorder [Unknown]

NARRATIVE: CASE EVENT DATE: 2007
